FAERS Safety Report 7995772-3 (Version None)
Quarter: 2011Q4

REPORT INFORMATION
  Report Type: 
  Country: None (occurrence: None)
  Receive Date: 20111220
  Receipt Date: 20111215
  Transmission Date: 20120403
  Serious: Yes (Hospitalization)
  Sender: FDA-Public Use
  Company Number: JP-B.I. PHARMACEUTICALS,INC./RIDGEFIELD-2011-BP-27023NB

PATIENT
  Sex: Male
  Weight: 64 kg

DRUGS (7)
  1. FAMOTIDINE [Concomitant]
     Indication: PROPHYLAXIS
     Dosage: 40 MG
     Route: 048
  2. TELMISARTAN AND HYDROCHLOROTHIAZIDE [Suspect]
     Indication: HYPERTENSION
     Route: 048
     Dates: start: 20101126, end: 20110807
  3. AMINOLEBAN EN [Concomitant]
     Dosage: 150 G
     Route: 048
     Dates: start: 20110728
  4. NORVASC [Concomitant]
     Indication: HYPERTENSION
     Dosage: 5 MG
     Route: 048
     Dates: end: 20110807
  5. ALLOPURINOL [Concomitant]
     Dosage: 100 MG
     Route: 048
     Dates: end: 20110807
  6. SELBEX [Concomitant]
     Indication: PROPHYLAXIS
     Dosage: 150 MG
     Route: 048
  7. MONILAC [Concomitant]
     Dosage: 30 ML
     Route: 048
     Dates: start: 20110107

REACTIONS (1)
  - CEREBRAL INFARCTION [None]
